FAERS Safety Report 5570626-0 (Version None)
Quarter: 2007Q4

REPORT INFORMATION
  Report Type: 
  Country: None (occurrence: None)
  Receive Date: 20071221
  Receipt Date: 20071214
  Transmission Date: 20080405
  Serious: Yes (Hospitalization)
  Sender: FDA-Public Use
  Company Number: BR-JNJFOC-20071204498

PATIENT
  Age: 29 Year
  Sex: Female
  Weight: 61.5 kg

DRUGS (1)
  1. ORTHO EVRA [Suspect]
     Indication: CONTRACEPTION
     Route: 062

REACTIONS (8)
  - APPLICATION SITE ERYTHEMA [None]
  - APPLICATION SITE IRRITATION [None]
  - APPLICATION SITE PRURITUS [None]
  - DIZZINESS [None]
  - HEADACHE [None]
  - NAUSEA [None]
  - SKIN PAPILLOMA [None]
  - VISUAL DISTURBANCE [None]
